FAERS Safety Report 26211126 (Version 1)
Quarter: 2025Q4

REPORT INFORMATION
  Report Type: Spontaneous
  Country: EU (occurrence: EU)
  Receive Date: 20251230
  Receipt Date: 20251230
  Transmission Date: 20260118
  Serious: Yes (Other)
  Sender: TEVA
  Company Number: EU-TEVA-VS-3407497

PATIENT
  Age: 45 Year
  Sex: Male

DRUGS (3)
  1. TERIFLUNOMIDE [Suspect]
     Active Substance: TERIFLUNOMIDE
     Indication: Multiple sclerosis
     Route: 065
  2. GLATIRAMER ACETATE [Suspect]
     Active Substance: GLATIRAMER ACETATE
     Indication: Multiple sclerosis
     Route: 065
  3. DIMETHYL FUMARATE [Suspect]
     Active Substance: DIMETHYL FUMARATE
     Indication: Multiple sclerosis
     Dosage: DMF
     Route: 065

REACTIONS (2)
  - Neutropenia [Unknown]
  - Mucocutaneous leishmaniasis [Unknown]
